FAERS Safety Report 7345681-8 (Version None)
Quarter: 2011Q1

REPORT INFORMATION
  Report Type: 
  Country: None (occurrence: None)
  Receive Date: 20110310
  Receipt Date: 20110303
  Transmission Date: 20110831
  Serious: Yes (Hospitalization)
  Sender: FDA-Public Use
  Company Number: B0704369A

PATIENT
  Sex: Female
  Weight: 82 kg

DRUGS (7)
  1. SELBEX [Concomitant]
     Indication: GASTRITIS PROPHYLAXIS
     Route: 048
     Dates: start: 20100222, end: 20101202
  2. ZOMETA [Suspect]
     Route: 042
     Dates: start: 20080401, end: 20101004
  3. TYKERB [Suspect]
     Indication: BREAST CANCER
     Dosage: 1250MG PER DAY
     Route: 048
     Dates: start: 20100316, end: 20100425
  4. TYKERB [Suspect]
     Dosage: 1000MG PER DAY
     Route: 048
     Dates: start: 20100426, end: 20110221
  5. PREDNISOLONE [Concomitant]
     Route: 048
     Dates: start: 20090525, end: 20110221
  6. XELODA [Suspect]
     Dosage: 3600MG PER DAY
     Route: 048
     Dates: start: 20100316, end: 20100425
  7. XELODA [Suspect]
     Dosage: 3600MG PER DAY
     Route: 048
     Dates: start: 20100510, end: 20100913

REACTIONS (1)
  - CELLULITIS [None]
